FAERS Safety Report 20010026 (Version 1)
Quarter: 2021Q4

REPORT INFORMATION
  Report Type: Spontaneous
  Country: US (occurrence: US)
  Receive Date: 20211029
  Receipt Date: 20211029
  Transmission Date: 20220303
  Serious: No
  Sender: FDA-Public Use
  Company Number: US-STRIDES ARCOLAB LIMITED-2021SP026338

PATIENT

DRUGS (8)
  1. GABAPENTIN [Suspect]
     Active Substance: GABAPENTIN
     Indication: Analgesic therapy
     Dosage: 100 MILLIGRAM/DAILY (SCHEDULED TO BE ADMINISTERED POST-OPERATIVELY FOR 14 DAYS FOLLOWED BY ANOTHER 2
     Route: 048
  2. ACETAMINOPHEN [Concomitant]
     Active Substance: ACETAMINOPHEN
     Indication: Analgesic therapy
     Dosage: 1000 MILLIGRAM (PREOPERATIVELY (MULTIMODAL ANALGESIC PROTOCOL))
     Route: 048
  3. ACETAMINOPHEN [Concomitant]
     Active Substance: ACETAMINOPHEN
     Dosage: 1000 MILLIGRAM, TID (MINIMUM OF 5 DAYS POSTOPERATIVELY THEN AS NEEDED (MULTIMODAL ANALGESIC PROTOCOL
     Route: 048
  4. PREGABALIN [Concomitant]
     Active Substance: PREGABALIN
     Indication: Analgesic therapy
     Dosage: 50 MILLIGRAM (PREOPERATIVELY (MULTIMODAL ANALGESIC PROTOCOL))
     Route: 048
  5. KETAMINE [Concomitant]
     Active Substance: KETAMINE
     Indication: Analgesic therapy
     Dosage: 0.5 MILLIGRAM/KILOGRAM (INTRAOPERATIVELY (MULTIMODAL ANALGESIC PROTOCOL))
     Route: 065
  6. KETAMINE [Concomitant]
     Active Substance: KETAMINE
     Dosage: 0.25 MILLIGRAM/KILOGRAM, EVERY HOUR (INTRAOPERATIVELY (MULTIMODAL ANALGESIC PROTOCOL))
     Route: 065
  7. BUPIVACAINE [Concomitant]
     Active Substance: BUPIVACAINE
     Indication: Analgesic therapy
     Dosage: 40 MILLILITER (INTRAOPERATIVELY; TRANSVERSUS ABDOMINIS PLANE BLOCK PERFORMED PRIOR TO CLOSURE (MULTI
     Route: 065
  8. FENTANYL [Concomitant]
     Active Substance: FENTANYL
     Indication: Analgesic therapy
     Dosage: POSTOPERATIVELY (MULTIMODAL ANALGESIC PROTOCOL
     Route: 042

REACTIONS (3)
  - Lip swelling [Unknown]
  - Pharyngeal swelling [Unknown]
  - Swelling face [Unknown]
